FAERS Safety Report 9094625 (Version 1)
Quarter: 2013Q1

REPORT INFORMATION
  Report Type: Spontaneous
  Country: IT (occurrence: IT)
  Receive Date: 20130219
  Receipt Date: 20130219
  Transmission Date: 20140127
  Serious: Yes (Death)
  Sender: FDA-Public Use
  Company Number: IT-PFIZER INC-2013060815

PATIENT
  Sex: Male

DRUGS (1)
  1. EFEXOR ER [Suspect]
     Indication: DEPRESSION
     Dosage: UNK

REACTIONS (1)
  - Completed suicide [Fatal]
